FAERS Safety Report 13332493 (Version 1)
Quarter: 2017Q1

REPORT INFORMATION
  Report Type: Spontaneous
  Country: US (occurrence: US)
  Receive Date: 20170314
  Receipt Date: 20170314
  Transmission Date: 20170428
  Serious: Yes (Hospitalization)
  Sender: FDA-Public Use
  Company Number: None

PATIENT
  Age: 60 Year
  Sex: Male

DRUGS (9)
  1. FOLIC ACID. [Concomitant]
     Active Substance: FOLIC ACID
  2. LASIX [Concomitant]
     Active Substance: FUROSEMIDE
  3. MORPHINE [Concomitant]
     Active Substance: MORPHINE
  4. POTASSIUM [Concomitant]
     Active Substance: POTASSIUM
  5. LETARIS [Concomitant]
     Active Substance: AMBRISENTAN
  6. JADENU [Suspect]
     Active Substance: DEFERASIROX
     Indication: SICKLE CELL ANAEMIA
     Route: 048
     Dates: start: 20160528
  7. ASPIRIN. [Concomitant]
     Active Substance: ASPIRIN
  8. OXYCODONE [Concomitant]
     Active Substance: OXYCODONE
  9. EXJADE [Concomitant]
     Active Substance: DEFERASIROX

REACTIONS (2)
  - Drug dose omission [None]
  - Pneumonia [None]

NARRATIVE: CASE EVENT DATE: 20170307
